FAERS Safety Report 24796230 (Version 1)
Quarter: 2025Q1

REPORT INFORMATION
  Report Type: Spontaneous
  Country: US (occurrence: US)
  Receive Date: 20250101
  Receipt Date: 20250101
  Transmission Date: 20250409
  Serious: Yes (Other)
  Sender: AMGEN
  Company Number: US-AMGEN-USASP2024254412

PATIENT
  Age: 17 Year
  Sex: Female

DRUGS (3)
  1. PREDNISONE [Suspect]
     Active Substance: PREDNISONE
     Indication: Deafness neurosensory
     Route: 048
  2. CARBOPLATIN [Concomitant]
     Active Substance: CARBOPLATIN
     Indication: Medulloblastoma
  3. CISPLATIN [Concomitant]
     Active Substance: CISPLATIN
     Indication: Medulloblastoma

REACTIONS (1)
  - Deafness neurosensory [Unknown]
